FAERS Safety Report 23403225 (Version 2)
Quarter: 2024Q1

REPORT INFORMATION
  Report Type: Report from Study
  Country: CH (occurrence: CH)
  Receive Date: 20240116
  Receipt Date: 20240117
  Transmission Date: 20240410
  Serious: Yes (Hospitalization)
  Sender: FDA-Public Use
  Company Number: CH-ABBVIE-5587974

PATIENT
  Age: 69 Year
  Sex: Male

DRUGS (13)
  1. CARBIDOPA\LEVODOPA [Suspect]
     Active Substance: CARBIDOPA\LEVODOPA
     Indication: Parkinson^s disease
     Dosage: MD: 2.0 ML, CRD: 3.9 ML/H, ED: 0.1 ML, CRN: 2.7 ML/H.?24H THERAPY
     Route: 050
     Dates: start: 20230817, end: 20230824
  2. CARBIDOPA\LEVODOPA [Suspect]
     Active Substance: CARBIDOPA\LEVODOPA
     Dosage: MD: 2.0 ML, CRD: 4.2 ML/H, ED: 0.2 ML, CRN: 2.9 ML/H.?24H THERAPY
     Route: 050
     Dates: start: 20230522, end: 20230808
  3. CARBIDOPA\LEVODOPA [Suspect]
     Active Substance: CARBIDOPA\LEVODOPA
     Dosage: MD: 2.0 ML, CRD: 3.9 ML/H, ED: 0.3 ML, CRN: 2.8 ML/H.
     Route: 050
     Dates: start: 20231025, end: 20240111
  4. CARBIDOPA\LEVODOPA [Suspect]
     Active Substance: CARBIDOPA\LEVODOPA
     Dosage: MD: 1.0 ML, CRD: 3.9 ML/H, ED: 0.1 ML, CRN: 2.7 ML/H.?24H THERAPY
     Route: 050
     Dates: start: 20230811, end: 20230817
  5. CARBIDOPA\LEVODOPA [Suspect]
     Active Substance: CARBIDOPA\LEVODOPA
     Dosage: MD: 2.0 ML, CRD: 4.1 ML/H, ED: 0.3 ML, CRN: 2.8 ML/H.?24H THERAPY
     Route: 050
     Dates: start: 20230501, end: 20230503
  6. CARBIDOPA\LEVODOPA [Suspect]
     Active Substance: CARBIDOPA\LEVODOPA
     Dosage: MD: 2.0 ML, CRD: 4.3 ML/H, ED: 0.3 ML, CRN: 2.9 ML/H.?24H THERAPY
     Route: 050
     Dates: start: 20230503, end: 20230522
  7. CARBIDOPA\LEVODOPA [Suspect]
     Active Substance: CARBIDOPA\LEVODOPA
     Dosage: MD: 2.0 ML, CRD: 3.9 ML/H, ED: 0.5 ML, CRN: 2.8 ML/H.?24H THERAPY
     Route: 050
     Dates: start: 20231010, end: 20231025
  8. CARBIDOPA\LEVODOPA [Suspect]
     Active Substance: CARBIDOPA\LEVODOPA
     Dosage: MD: 2.0 ML, CRD: 4.0 ML/H, ED: 0.2 ML, CRN: 2.7 ML/H.?24H THERAPY
     Route: 050
     Dates: start: 20230824, end: 20230829
  9. CARBIDOPA\LEVODOPA [Suspect]
     Active Substance: CARBIDOPA\LEVODOPA
     Dosage: 24H THERAPY
     Route: 050
     Dates: start: 20220919
  10. CARBIDOPA\LEVODOPA [Suspect]
     Active Substance: CARBIDOPA\LEVODOPA
     Dosage: MD: 2.0 ML, CRD: 3.9 ML/H, ED: 0.3 ML, CRN: 2.8 ML/H.
     Route: 050
     Dates: start: 20240111, end: 20240111
  11. CARBIDOPA\LEVODOPA [Suspect]
     Active Substance: CARBIDOPA\LEVODOPA
     Dosage: MD: 2.0 ML, CRD: 4.0 ML/H, ED: 0.2 ML, CRN: 2.8 ML/H.?24H THERAPY
     Route: 050
     Dates: start: 20230829, end: 20231010
  12. CARBIDOPA\LEVODOPA [Suspect]
     Active Substance: CARBIDOPA\LEVODOPA
     Dosage: MD: 2.0 ML, CRD: 3.9 ML/H, ED: 0.1 ML, CRN: 2.7 ML/H.?24H THERAPY
     Route: 050
     Dates: start: 20230808, end: 20230811
  13. CARBIDOPA\LEVODOPA [Suspect]
     Active Substance: CARBIDOPA\LEVODOPA
     Route: 050

REACTIONS (6)
  - Surgery [Unknown]
  - Underdose [Unknown]
  - Speech disorder [Not Recovered/Not Resolved]
  - Device leakage [Recovered/Resolved]
  - Device issue [Recovered/Resolved]
  - Off label use [Recovered/Resolved]

NARRATIVE: CASE EVENT DATE: 20240110
